FAERS Safety Report 14322221 (Version 4)
Quarter: 2018Q3

REPORT INFORMATION
  Report Type: Spontaneous
  Country: BR (occurrence: BR)
  Receive Date: 20171225
  Receipt Date: 20180730
  Transmission Date: 20181010
  Serious: Yes (Other)
  Sender: FDA-Public Use
  Company Number: PHHY2017BR189598

PATIENT
  Sex: Female
  Weight: 52 kg

DRUGS (2)
  1. FORASEQ [Suspect]
     Active Substance: BUDESONIDE\FORMOTEROL FUMARATE
     Indication: DYSPNOEA
     Dosage: 1 DF, BID
     Route: 055
  2. FORASEQ [Suspect]
     Active Substance: BUDESONIDE\FORMOTEROL FUMARATE
     Indication: EMPHYSEMA

REACTIONS (9)
  - Anxiety [Unknown]
  - Chronic obstructive pulmonary disease [Unknown]
  - Device malfunction [Unknown]
  - Drug dependence [Not Recovered/Not Resolved]
  - Tension [Unknown]
  - Product quality issue [Unknown]
  - Device breakage [Unknown]
  - Affect lability [Unknown]
  - Insomnia [Unknown]
